FAERS Safety Report 25636718 (Version 1)
Quarter: 2025Q3

REPORT INFORMATION
  Report Type: Report from Study
  Country: US (occurrence: US)
  Receive Date: 20250804
  Receipt Date: 20250804
  Transmission Date: 20251021
  Serious: Yes (Other)
  Sender: ABBVIE
  Company Number: US-ABBVIE-6393320

PATIENT
  Sex: Female

DRUGS (1)
  1. RINVOQ [Suspect]
     Active Substance: UPADACITINIB
     Indication: Rheumatoid arthritis
     Route: 048

REACTIONS (6)
  - Cataract [Unknown]
  - Abdominal distension [Unknown]
  - Oral mucosal blistering [Unknown]
  - Diverticulitis [Unknown]
  - Dry eye [Unknown]
  - Ocular discomfort [Unknown]
